FAERS Safety Report 5953810-3 (Version None)
Quarter: 2008Q4

REPORT INFORMATION
  Report Type: 
  Country: None (occurrence: None)
  Receive Date: 20081114
  Receipt Date: 20081104
  Transmission Date: 20090506
  Serious: Yes (Hospitalization, Other)
  Sender: FDA-Public Use
  Company Number: US-PFIZER INC-2008080750

PATIENT
  Age: 19 Year
  Sex: Female

DRUGS (4)
  1. NEURONTIN [Suspect]
  2. GENERAL NUTRIENTS [Suspect]
  3. METOCLOPRAMIDE [Concomitant]
     Route: 048
  4. CARAFATE [Concomitant]

REACTIONS (2)
  - BLOOD GLUCOSE INCREASED [None]
  - IMPAIRED GASTRIC EMPTYING [None]
